FAERS Safety Report 17066634 (Version 1)
Quarter: 2019Q4

REPORT INFORMATION
  Report Type: Spontaneous
  Country: US (occurrence: US)
  Receive Date: 20191122
  Receipt Date: 20191122
  Transmission Date: 20200122
  Serious: Yes (Death)
  Sender: FDA-Public Use
  Company Number: US-LA JOLLA PHARMACEUTICAL COMPANY-0000329

PATIENT

DRUGS (2)
  1. GIAPREZA [Suspect]
     Active Substance: ANGIOTENSIN II
     Indication: SEPSIS
     Dosage: 2.5 MG IN 500 ML BAG (TITRATED AT 1.2-74.6ML/HOUR)
     Dates: start: 20191108, end: 20191109
  2. UNSPECIFIED TRADITIONAL MEDICINE [Concomitant]
     Active Substance: UNSPECIFIED INGREDIENT
     Indication: THERMAL BURN

REACTIONS (1)
  - Mean arterial pressure decreased [Fatal]

NARRATIVE: CASE EVENT DATE: 20191109
